FAERS Safety Report 8401619 (Version 8)
Quarter: 2014Q1

REPORT INFORMATION
  Report Type: Spontaneous
  Country: US (occurrence: US)
  Receive Date: 20120210
  Receipt Date: 20140130
  Transmission Date: 20141002
  Serious: Yes (Other)
  Sender: FDA-Public Use
  Company Number: US-ASTRAZENECA-2011SE55107

PATIENT
  Age: 30366 Day
  Sex: Female
  Weight: 74.8 kg

DRUGS (10)
  1. NEXIUM [Suspect]
     Indication: GASTRITIS
     Route: 048
  2. NEXIUM [Suspect]
     Indication: GASTROOESOPHAGEAL REFLUX DISEASE
     Route: 048
  3. NEXIUM [Suspect]
     Indication: GASTRITIS
     Route: 048
  4. NEXIUM [Suspect]
     Indication: GASTROOESOPHAGEAL REFLUX DISEASE
     Route: 048
  5. NEXIUM [Suspect]
     Indication: GASTRITIS
     Dosage: SHE TOOK TWO
     Route: 048
  6. NEXIUM [Suspect]
     Indication: GASTROOESOPHAGEAL REFLUX DISEASE
     Dosage: SHE TOOK TWO
     Route: 048
  7. NEXIUM [Suspect]
     Indication: GASTRITIS
     Route: 048
     Dates: start: 2008, end: 20131211
  8. NEXIUM [Suspect]
     Indication: GASTROOESOPHAGEAL REFLUX DISEASE
     Route: 048
     Dates: start: 2008, end: 20131211
  9. NEXIUM [Suspect]
     Indication: GASTRITIS
     Dosage: SOMETIMES TAKES 2 NEXIUM
     Route: 048
  10. NEXIUM [Suspect]
     Indication: GASTROOESOPHAGEAL REFLUX DISEASE
     Dosage: SOMETIMES TAKES 2 NEXIUM
     Route: 048

REACTIONS (13)
  - Upper limb fracture [Unknown]
  - Fall [Unknown]
  - Bronchitis [Unknown]
  - Memory impairment [Not Recovered/Not Resolved]
  - Pharyngitis [Unknown]
  - Gastrooesophageal reflux disease [Unknown]
  - Dyspnoea [Unknown]
  - Dysphonia [Unknown]
  - Malaise [Unknown]
  - Abdominal discomfort [Unknown]
  - Nausea [Unknown]
  - Drug dose omission [Not Recovered/Not Resolved]
  - Off label use [Unknown]
